FAERS Safety Report 23764773 (Version 1)
Quarter: 2024Q2

REPORT INFORMATION
  Report Type: Spontaneous
  Country: US (occurrence: US)
  Receive Date: 20240420
  Receipt Date: 20240420
  Transmission Date: 20240716
  Serious: Yes (Death, Hospitalization, Other)
  Sender: FDA-Public Use
  Company Number: US-ASTELLAS-2023US022794

PATIENT
  Age: 94 Year
  Sex: Male

DRUGS (6)
  1. LOSARTAN [Suspect]
     Active Substance: LOSARTAN
     Indication: Hypertension
     Dosage: UNKNOWN
     Route: 065
  2. MIRABEGRON [Suspect]
     Active Substance: MIRABEGRON
     Indication: Incontinence
     Route: 048
     Dates: end: 202304
  3. APIXABAN [Concomitant]
     Active Substance: APIXABAN
     Indication: Product used for unknown indication
     Dosage: UNKNOWN
     Route: 065
  4. FINASTERIDE [Concomitant]
     Active Substance: FINASTERIDE
     Indication: Product used for unknown indication
     Dosage: UNKNOWN
     Route: 065
  5. LOSARTAN [Concomitant]
     Active Substance: LOSARTAN
     Indication: Product used for unknown indication
     Dosage: UNKNOWN
     Route: 065
  6. TERAZOSIN [Concomitant]
     Active Substance: TERAZOSIN HYDROCHLORIDE
     Indication: Product used for unknown indication
     Dosage: UNKNOWN
     Route: 065

REACTIONS (17)
  - Dizziness [Unknown]
  - Cardiac failure congestive [Fatal]
  - Myocardial ischaemia [Unknown]
  - Bronchitis [Recovered/Resolved]
  - Small intestinal obstruction [Recovered/Resolved]
  - Epistaxis [Recovered/Resolved]
  - Acute respiratory failure [Recovered/Resolved]
  - Bronchial hyperreactivity [Recovered/Resolved]
  - Fall [Not Recovered/Not Resolved]
  - Ejection fraction [Unknown]
  - Electrolyte imbalance [Recovered/Resolved]
  - Glomerular filtration rate decreased [Recovering/Resolving]
  - Blood sodium increased [Not Recovered/Not Resolved]
  - Haematocrit decreased [Not Recovered/Not Resolved]
  - Skin laceration [Unknown]
  - Femur fracture [Not Recovered/Not Resolved]
  - Haemoglobin decreased [Not Recovered/Not Resolved]

NARRATIVE: CASE EVENT DATE: 20210902
